FAERS Safety Report 5425914-5 (Version None)
Quarter: 2007Q3

REPORT INFORMATION
  Report Type: 
  Country: None (occurrence: None)
  Receive Date: 20070827
  Receipt Date: 20070818
  Transmission Date: 20080115
  Serious: Yes (Hospitalization)
  Sender: FDA-Public Use
  Company Number: US-BRISTOL-MYERS SQUIBB COMPANY-13887435

PATIENT
  Age: 65 Year
  Sex: Male

DRUGS (3)
  1. COUMADIN [Suspect]
  2. PLAVIX [Suspect]
  3. ASPIRIN [Suspect]

REACTIONS (2)
  - CARDIAC FAILURE CONGESTIVE [None]
  - CHEST PAIN [None]
